FAERS Safety Report 14080990 (Version 1)
Quarter: 2017Q4

REPORT INFORMATION
  Report Type: Spontaneous
  Country: DE (occurrence: DE)
  Receive Date: 20171012
  Receipt Date: 20171012
  Transmission Date: 20180321
  Serious: Yes (Other)
  Sender: FDA-Public Use
  Company Number: DE-NAPPMUNDI-GBR-2017-0049426

PATIENT

DRUGS (1)
  1. MSI [Suspect]
     Active Substance: MORPHINE SULFATE
     Indication: ACUTE CORONARY SYNDROME
     Dosage: 10 MG/ML, SINGLE
     Route: 042
     Dates: start: 20170926, end: 20170926

REACTIONS (5)
  - Pruritus [Recovered/Resolved]
  - Urticaria [Recovered/Resolved]
  - Off label use [Unknown]
  - Infusion site pain [Recovered/Resolved]
  - Rash [Not Recovered/Not Resolved]

NARRATIVE: CASE EVENT DATE: 20170926
